FAERS Safety Report 18991675 (Version 1)
Quarter: 2021Q1

REPORT INFORMATION
  Report Type: Spontaneous
  Country: US (occurrence: US)
  Receive Date: 20210310
  Receipt Date: 20210310
  Transmission Date: 20210420
  Serious: No
  Sender: FDA-Public Use
  Company Number: US-BRISTOL-MYERS SQUIBB COMPANY-BMS-2021-021227

PATIENT
  Sex: Male
  Weight: 74.8 kg

DRUGS (1)
  1. ELIQUIS [Suspect]
     Active Substance: APIXABAN
     Indication: DEEP VEIN THROMBOSIS
     Dosage: UNK, BID
     Route: 048
     Dates: start: 202010

REACTIONS (4)
  - Contusion [Unknown]
  - Intentional dose omission [Unknown]
  - Joint swelling [Unknown]
  - Skin discolouration [Unknown]
